FAERS Safety Report 6812806-X (Version None)
Quarter: 2010Q3

REPORT INFORMATION
  Report Type: 
  Country: None (occurrence: None)
  Receive Date: 20100701
  Receipt Date: 20100630
  Transmission Date: 20110219
  Serious: Yes (Congenital Anomaly)
  Sender: FDA-Public Use
  Company Number: B0663087A

PATIENT
  Sex: Female

DRUGS (3)
  1. ABACAVIR [Suspect]
  2. KALETRA [Suspect]
  3. TENOFOVIR [Suspect]

REACTIONS (2)
  - CLEFT LIP AND PALATE [None]
  - DRUG EXPOSURE DURING PREGNANCY [None]
